FAERS Safety Report 9467382 (Version 1)
Quarter: 2013Q3

REPORT INFORMATION
  Report Type: Spontaneous
  Country: US (occurrence: None)
  Receive Date: 20130819
  Receipt Date: 20130819
  Transmission Date: 20140515
  Serious: Yes (Other)
  Sender: FDA-Public Use
  Company Number: None

PATIENT
  Sex: Female
  Weight: 56.7 kg

DRUGS (2)
  1. CETIRIZINE -PSE ER [Suspect]
     Indication: EAR INFECTION
     Dosage: 5 - 120 MG 1 TAB TWICE DAY
     Dates: start: 20130221
  2. AZITHROMYCIN [Suspect]
     Indication: EAR INFECTION
     Dosage: 250 MG 1 TAB FOR 5 DAYS
     Dates: start: 20130221

REACTIONS (3)
  - Chest pain [None]
  - Fear [None]
  - Heart rate increased [None]
